FAERS Safety Report 8605565-1 (Version None)
Quarter: 2012Q3

REPORT INFORMATION
  Report Type: 
  Country: None (occurrence: None)
  Receive Date: 20120820
  Receipt Date: 20120813
  Transmission Date: 20120928
  Serious: Yes (Hospitalization)
  Sender: FDA-Public Use
  Company Number: US-SANOFI-AVENTIS-2012SA021852

PATIENT
  Age: 63 Year
  Sex: Male
  Weight: 62.82 kg

DRUGS (24)
  1. BLINDED THERAPY [Suspect]
     Route: 048
     Dates: start: 20120314
  2. COLACE [Concomitant]
     Indication: CONSTIPATION
     Dates: start: 20120103
  3. COMPAZINE [Concomitant]
     Indication: NAUSEA
     Dates: start: 20120103
  4. DEXAMETHASONE [Concomitant]
     Indication: NAUSEA
     Dates: start: 20120103
  5. GABAPENTIN [Concomitant]
     Indication: PAIN MANAGEMENT
  6. ZOLPIDEM TARTRATE [Concomitant]
     Indication: INSOMNIA
  7. EMLA [Concomitant]
     Indication: PAIN MANAGEMENT
     Dosage: DOSE:1 UNIT(S)
  8. ZOFRAN [Concomitant]
     Indication: NAUSEA
  9. LAXATIVES [Concomitant]
     Indication: CONSTIPATION
     Dates: start: 20120103
  10. RITALIN [Concomitant]
     Indication: DEPRESSION
  11. OFLOXACIN [Concomitant]
     Indication: OTITIS EXTERNA
  12. OXYCODONE HCL [Concomitant]
     Indication: PAIN MANAGEMENT
  13. LOPRESSOR [Concomitant]
     Indication: HYPERTENSION
  14. NYSTATIN [Concomitant]
  15. OXYCONTIN [Concomitant]
     Indication: PAIN MANAGEMENT
  16. DOCETAXEL [Suspect]
     Route: 042
     Dates: start: 20120103
  17. SIMVASTATIN [Concomitant]
  18. ASPIRIN [Concomitant]
     Indication: CORONARY ARTERY DISEASE
  19. LIDOCAINE [Concomitant]
     Indication: PAIN MANAGEMENT
     Dosage: DOSE: 1 UNIT NOT REPORTED.
  20. SENNA [Concomitant]
     Indication: CONSTIPATION
     Dates: start: 20120103
  21. DIPHENHYDRAMINE/LIDOCAINE [Concomitant]
     Indication: PAIN MANAGEMENT
  22. MIRALAX [Concomitant]
     Indication: CONSTIPATION
     Dates: start: 20120103
  23. BLINDED THERAPY [Suspect]
     Route: 048
     Dates: start: 20120104
  24. ROXICET [Concomitant]
     Indication: PAIN MANAGEMENT

REACTIONS (1)
  - MOUTH HAEMORRHAGE [None]
